FAERS Safety Report 6904928-X (Version None)
Quarter: 2010Q3

REPORT INFORMATION
  Report Type: 
  Country: None (occurrence: None)
  Receive Date: 20100804
  Receipt Date: 20100728
  Transmission Date: 20110219
  Serious: Yes (Hospitalization)
  Sender: FDA-Public Use
  Company Number: US-SHIRE-SPV1-2010-01362

PATIENT

DRUGS (2)
  1. INTUNIV [Suspect]
     Indication: PRODUCT USED FOR UNKNOWN INDICATION
     Dosage: 3 MG, 1X/DAY:QD
     Route: 048
     Dates: start: 20100101, end: 20100101
  2. INTUNIV [Suspect]
     Dosage: 2 MG, UNK
     Dates: start: 20100701

REACTIONS (5)
  - DIZZINESS [None]
  - DYSSTASIA [None]
  - HYPOTENSION [None]
  - LETHARGY [None]
  - PNEUMONIA VIRAL [None]
